FAERS Safety Report 9917788 (Version 1)
Quarter: 2014Q1

REPORT INFORMATION
  Report Type: Spontaneous
  Country: US (occurrence: US)
  Receive Date: 20140221
  Receipt Date: 20140221
  Transmission Date: 20141002
  Serious: Yes (Other)
  Sender: FDA-Public Use
  Company Number: US-PFIZER INC-2014047828

PATIENT
  Sex: Female

DRUGS (5)
  1. GLIPIZIDE [Suspect]
     Dosage: UNK
  2. METFORMIN HCL [Suspect]
     Dosage: UNK
  3. NOVOLOG [Suspect]
     Dosage: UNK
  4. LANTUS [Suspect]
     Dosage: UNK
  5. BYETTA [Suspect]
     Dosage: UNK

REACTIONS (1)
  - Blood glucose decreased [Recovered/Resolved]
